FAERS Safety Report 5218229-1 (Version None)
Quarter: 2007Q1

REPORT INFORMATION
  Report Type: 
  Country: None (occurrence: None)
  Receive Date: 20070124
  Receipt Date: 20061215
  Transmission Date: 20070707
  Serious: Yes (Other)
  Sender: FDA-Public Use
  Company Number: US-PFIZER INC-2006027608

PATIENT
  Sex: Female
  Weight: 120.2 kg

DRUGS (4)
  1. BEXTRA [Suspect]
     Indication: ARTHRITIS
     Route: 048
  2. LEVOTHYROXINE SODIUM [Concomitant]
  3. POTASSIUM CHLORIDE [Concomitant]
  4. NORVASC [Concomitant]

REACTIONS (1)
  - RASH [None]
